FAERS Safety Report 9457435 (Version 1)
Quarter: 2013Q3

REPORT INFORMATION
  Report Type: Spontaneous
  Country: US (occurrence: US)
  Receive Date: 20130814
  Receipt Date: 20130814
  Transmission Date: 20140515
  Serious: Yes (Other)
  Sender: FDA-Public Use
  Company Number: US-JNJFOC-20130718354

PATIENT
  Age: 11 Year
  Sex: 0

DRUGS (3)
  1. TYLENOL [Suspect]
     Route: 042
  2. TYLENOL [Suspect]
     Indication: PREMEDICATION
     Route: 042
  3. VERSED [Suspect]
     Indication: PREMEDICATION
     Route: 042

REACTIONS (2)
  - Loss of consciousness [Recovered/Resolved]
  - Incorrect route of drug administration [Unknown]
